FAERS Safety Report 11293647 (Version 1)
Quarter: 2015Q3

REPORT INFORMATION
  Report Type: Spontaneous
  Country: FR (occurrence: FR)
  Receive Date: 20150722
  Receipt Date: 20150722
  Transmission Date: 20151125
  Serious: Yes (Hospitalization)
  Sender: FDA-Public Use
  Company Number: FR-MERCK-1507FRA008197

PATIENT
  Age: 53 Year
  Sex: Male

DRUGS (2)
  1. CANCIDAS [Suspect]
     Active Substance: CASPOFUNGIN ACETATE
     Indication: APLASIA
     Dosage: 50 MG, QD
     Route: 042
     Dates: start: 20150627, end: 20150630
  2. SERESTA [Concomitant]
     Active Substance: OXAZEPAM

REACTIONS (2)
  - Presyncope [Recovered/Resolved]
  - Orthostatic hypotension [Recovered/Resolved]

NARRATIVE: CASE EVENT DATE: 20150628
